FAERS Safety Report 4273151-2 (Version None)
Quarter: 2004Q1

REPORT INFORMATION
  Report Type: 
  Country: None (occurrence: None)
  Receive Date: 20040116
  Receipt Date: 20040113
  Transmission Date: 20041129
  Serious: Yes (Hospitalization)
  Sender: FDA-Public Use
  Company Number: FR-GLAXOSMITHKLINE-B0319638A

PATIENT
  Age: 73 Year
  Sex: Female

DRUGS (1)
  1. ZELITREX [Suspect]
     Route: 048

REACTIONS (2)
  - CONFUSIONAL STATE [None]
  - DEHYDRATION [None]
